FAERS Safety Report 22673805 (Version 12)
Quarter: 2024Q3

REPORT INFORMATION
  Report Type: Report from Study
  Country: US (occurrence: US)
  Receive Date: 20230705
  Receipt Date: 20240819
  Transmission Date: 20241016
  Serious: Yes (Other)
  Sender: XERIS PHARMACEUTICALS
  Company Number: US-XERIS PHARMACEUTICALS-2023XER01959

PATIENT
  Sex: Female
  Weight: 129.25 kg

DRUGS (7)
  1. RECORLEV [Suspect]
     Active Substance: LEVOKETOCONAZOLE
     Indication: Pituitary-dependent Cushing^s syndrome
     Dosage: 150 MG, 1X/DAY
     Route: 048
     Dates: start: 20230612
  2. RECORLEV [Suspect]
     Active Substance: LEVOKETOCONAZOLE
     Dosage: 150 MG, 2X/DAY
     Route: 048
     Dates: start: 2023
  3. RECORLEV [Suspect]
     Active Substance: LEVOKETOCONAZOLE
     Dosage: 2 TABLETS (300 MG), 2X/DAY
     Route: 048
  4. RECORLEV [Suspect]
     Active Substance: LEVOKETOCONAZOLE
     Dosage: 150 MG, 2X/DAY
     Route: 048
  5. RECORLEV [Suspect]
     Active Substance: LEVOKETOCONAZOLE
     Dosage: 150 MG, 2X/DAY, 1 TAB IN AM AND 1 TAB IN PM
     Route: 048
  6. RECORLEV [Suspect]
     Active Substance: LEVOKETOCONAZOLE
     Dosage: 2 TABLETS (300 MG), 2X/DAY
     Route: 048
     Dates: start: 20231103
  7. UNSPECIFIED INGREDIENT [Concomitant]
     Active Substance: UNSPECIFIED INGREDIENT

REACTIONS (19)
  - Autoimmune disorder [Unknown]
  - Constipation [Not Recovered/Not Resolved]
  - Sciatica [Not Recovered/Not Resolved]
  - Feeling abnormal [Unknown]
  - Burning sensation [Not Recovered/Not Resolved]
  - Somnolence [Unknown]
  - Paraesthesia [Not Recovered/Not Resolved]
  - Hypersomnia [Not Recovered/Not Resolved]
  - Malaise [Not Recovered/Not Resolved]
  - Laboratory test abnormal [Unknown]
  - Hypovitaminosis [Unknown]
  - Pain [Not Recovered/Not Resolved]
  - Abdominal pain upper [Unknown]
  - Nausea [Unknown]
  - Vomiting [Unknown]
  - Fatigue [Not Recovered/Not Resolved]
  - Headache [Unknown]
  - Unevaluable event [Unknown]
  - Product dose omission issue [Unknown]

NARRATIVE: CASE EVENT DATE: 20230101
